FAERS Safety Report 8525778-7 (Version None)
Quarter: 2012Q3

REPORT INFORMATION
  Report Type: 
  Country: None (occurrence: None)
  Receive Date: 20120720
  Receipt Date: 20120711
  Transmission Date: 20120928
  Serious: Yes (Hospitalization)
  Sender: FDA-Public Use
  Company Number: US-ABBOTT-12P-163-0954978-00

PATIENT
  Age: 52 Year
  Sex: Male

DRUGS (7)
  1. HUMIRA [Suspect]
     Indication: PSORIATIC ARTHROPATHY
     Route: 058
  2. HUMIRA [Suspect]
  3. NAPROXEN [Concomitant]
     Indication: PRODUCT USED FOR UNKNOWN INDICATION
  4. METHOTREXATE [Concomitant]
     Indication: PRODUCT USED FOR UNKNOWN INDICATION
  5. ANCEF [Suspect]
     Indication: INFECTION
     Route: 042
  6. HUMIRA [Suspect]
  7. HUMIRA [Suspect]

REACTIONS (9)
  - LOCALISED INFECTION [None]
  - HYPERTENSION [None]
  - INJECTION SITE PAIN [None]
  - THROAT TIGHTNESS [None]
  - ACNE [None]
  - INJECTION SITE HAEMORRHAGE [None]
  - DEVICE MALFUNCTION [None]
  - LYMPHOEDEMA [None]
  - INJECTION SITE NODULE [None]
